FAERS Safety Report 24116791 (Version 1)
Quarter: 2024Q3

REPORT INFORMATION
  Report Type: Spontaneous
  Country: IT (occurrence: IT)
  Receive Date: 20240722
  Receipt Date: 20240722
  Transmission Date: 20241017
  Serious: Yes (Hospitalization)
  Sender: STRIDES
  Company Number: None

PATIENT
  Age: 28 Year
  Sex: Female

DRUGS (12)
  1. PREDNISOLONE [Suspect]
     Active Substance: PREDNISOLONE
     Indication: Immunosuppressant drug therapy
     Dosage: UNK, CYCLICAL (INDUCTION CYCLE)
     Route: 065
     Dates: start: 2019
  2. MYCOPHENOLATE MOFETIL [Suspect]
     Active Substance: MYCOPHENOLATE MOFETIL
     Indication: Immunosuppressant drug therapy
     Dosage: UNK
     Route: 065
     Dates: start: 2013, end: 2017
  3. MYCOPHENOLATE MOFETIL [Suspect]
     Active Substance: MYCOPHENOLATE MOFETIL
     Dosage: UNK, GRADUAL AUGMENTATION
     Route: 065
     Dates: start: 2017
  4. MYCOPHENOLATE MOFETIL [Suspect]
     Active Substance: MYCOPHENOLATE MOFETIL
     Dosage: UNK, CYCLICAL (NEW INDUCTION CYCLE)
     Route: 065
     Dates: start: 2019
  5. MYCOPHENOLATE MOFETIL [Suspect]
     Active Substance: MYCOPHENOLATE MOFETIL
     Dosage: UNK , ENHANCED THERAPY
     Route: 065
     Dates: start: 202007, end: 202011
  6. TACROLIMUS [Suspect]
     Active Substance: TACROLIMUS
     Indication: Immunosuppressant drug therapy
     Dosage: UNK, CYCLICAL (INDUCTION CYCLE)
     Route: 065
     Dates: start: 2013, end: 2017
  7. TACROLIMUS [Suspect]
     Active Substance: TACROLIMUS
     Dosage: UNK (GRADUAL AUGMENTATION)
     Route: 065
     Dates: start: 2017
  8. TACROLIMUS [Suspect]
     Active Substance: TACROLIMUS
     Dosage: UNK, CYCLICAL (NEW INDUCTION CYCLE)
     Route: 065
     Dates: start: 2019
  9. TACROLIMUS [Suspect]
     Active Substance: TACROLIMUS
     Dosage: UNK, ENHANCED THERAPY
     Route: 065
     Dates: start: 202007, end: 202011
  10. METHYLPREDNISOLONE [Suspect]
     Active Substance: METHYLPREDNISOLONE
     Indication: Immunosuppressant drug therapy
     Dosage: UNK (BOLUSES)
     Route: 042
     Dates: start: 201712
  11. METHYLPREDNISOLONE [Suspect]
     Active Substance: METHYLPREDNISOLONE
     Dosage: UNK, CYCLICAL (BOLUSES INDUCTION CYCLE)
     Route: 042
     Dates: start: 202007
  12. HYDROXYCHLOROQUINE [Suspect]
     Active Substance: HYDROXYCHLOROQUINE
     Indication: Immunosuppressant drug therapy
     Dosage: UNK
     Route: 042

REACTIONS (5)
  - Nephritis [Recovered/Resolved]
  - Immunosuppressant drug level increased [Unknown]
  - Respiratory failure [Recovered/Resolved]
  - Pleural effusion [Recovered/Resolved]
  - COVID-19 pneumonia [Recovered/Resolved]

NARRATIVE: CASE EVENT DATE: 20201029
